FAERS Safety Report 5322987-5 (Version None)
Quarter: 2007Q2

REPORT INFORMATION
  Report Type: 
  Country: None (occurrence: None)
  Receive Date: 20070220
  Receipt Date: 20070102
  Transmission Date: 20071010
  Serious: No
  Sender: FDA-Public Use
  Company Number: WAES 0701USA00253

PATIENT
  Age: 82 Year
  Sex: Female

DRUGS (3)
  1. JANUVIA [Suspect]
     Indication: DIABETES MELLITUS
     Dosage: 100 MG/DAILY/PO
     Route: 048
     Dates: start: 20061219, end: 20061231
  2. NEXIUM [Concomitant]
  3. ZEBETA [Concomitant]

REACTIONS (2)
  - LARYNGITIS [None]
  - UPPER RESPIRATORY TRACT INFECTION [None]
